FAERS Safety Report 7705286-3 (Version None)
Quarter: 2011Q3

REPORT INFORMATION
  Report Type: 
  Country: None (occurrence: None)
  Receive Date: 20110824
  Receipt Date: 20110819
  Transmission Date: 20111222
  Serious: Yes (Hospitalization, Other)
  Sender: FDA-Public Use
  Company Number: NL-AMGEN-NLDSP2011032477

PATIENT
  Age: 58 Year
  Sex: Female
  Weight: 71 kg

DRUGS (6)
  1. CYCLOPHOSPHAMIDE [Concomitant]
     Dosage: 600 MG/M2, UNK
     Dates: start: 20110610
  2. DEXAMETHASONE [Concomitant]
  3. ADRIAMYCIN PFS [Concomitant]
     Dosage: 60 MG/M2, UNK
     Dates: start: 20110610
  4. EFFEXOR [Concomitant]
     Dosage: 75 MG, UNK
     Route: 048
  5. LOSARTAN [Concomitant]
     Dosage: 50 MG, UNK
     Route: 048
  6. NEULASTA [Suspect]
     Indication: CHEMOTHERAPY
     Dosage: 6 UNK, UNK
     Route: 058
     Dates: start: 20110611, end: 20110807

REACTIONS (7)
  - MALAISE [None]
  - VOMITING [None]
  - BONE PAIN [None]
  - NASOPHARYNGITIS [None]
  - MUSCULAR WEAKNESS [None]
  - SINUSITIS [None]
  - DEHYDRATION [None]
